FAERS Safety Report 25426279 (Version 1)
Quarter: 2025Q2

REPORT INFORMATION
  Report Type: Report from Study
  Country: US (occurrence: US)
  Receive Date: 20250612
  Receipt Date: 20250612
  Transmission Date: 20250717
  Serious: Yes (Other)
  Sender: ABBVIE
  Company Number: US-ABBVIE-6103936

PATIENT
  Age: 74 Year
  Sex: Female

DRUGS (1)
  1. SKYRIZI [Suspect]
     Active Substance: RISANKIZUMAB-RZAA
     Indication: Psoriasis
     Route: 058
     Dates: start: 20220728, end: 2024

REACTIONS (8)
  - Hip surgery [Recovering/Resolving]
  - Skin plaque [Unknown]
  - SARS-CoV-2 test positive [Recovering/Resolving]
  - Biliary tract operation [Recovering/Resolving]
  - Skin fissures [Unknown]
  - Pruritus [Recovering/Resolving]
  - Skin irritation [Unknown]
  - Skin disorder [Unknown]

NARRATIVE: CASE EVENT DATE: 20250121
